FAERS Safety Report 8363080-7 (Version None)
Quarter: 2012Q2

REPORT INFORMATION
  Report Type: 
  Country: None (occurrence: None)
  Receive Date: 20120516
  Receipt Date: 20111018
  Transmission Date: 20120825
  Serious: Yes (Hospitalization)
  Sender: FDA-Public Use
  Company Number: US-ALEXION-A201101705

PATIENT
  Sex: Female

DRUGS (6)
  1. FOLIC ACID [Concomitant]
     Dosage: 1 MG, QD
     Route: 048
  2. SOLIRIS [Suspect]
     Dosage: 600 MG, SINGLE
     Route: 042
     Dates: start: 20100813, end: 20100813
  3. SOLIRIS [Suspect]
     Dosage: 900 MG, Q2W
     Route: 042
     Dates: start: 20100820
  4. SOLIRIS [Suspect]
     Indication: PAROXYSMAL NOCTURNAL HAEMOGLOBINURIA
     Dosage: 600 MG, QW
     Route: 042
     Dates: start: 20100716, end: 20100730
  5. FERROUS SULFATE TAB [Concomitant]
     Dosage: 1 TAB, QD
     Route: 048
  6. MULTI-VITAMIN [Concomitant]
     Dosage: 1 TAB, QD
     Route: 048

REACTIONS (3)
  - URINARY TRACT INFECTION [None]
  - VIRAL PHARYNGITIS [None]
  - ANAEMIA [None]
